FAERS Safety Report 18430187 (Version 2)
Quarter: 2020Q4

REPORT INFORMATION
  Report Type: Spontaneous
  Country: US (occurrence: US)
  Receive Date: 20201027
  Receipt Date: 20201116
  Transmission Date: 20210114
  Serious: Yes (Hospitalization, Other)
  Sender: FDA-Public Use
  Company Number: US-AUROBINDO-AUR-APL-2020-053677

PATIENT
  Age: 24 Year
  Sex: Male

DRUGS (3)
  1. TAMSULOSIN CAPSULE [Suspect]
     Active Substance: TAMSULOSIN
     Indication: URETEROLITHIASIS
     Dosage: 0.4 MILLIGRAM (TAKEN THREE PILLS AFTER DISCHARGE)
     Route: 065
  2. TAMSULOSIN CAPSULE [Suspect]
     Active Substance: TAMSULOSIN
     Indication: LOWER URINARY TRACT SYMPTOMS
     Dosage: UNK
     Route: 065
  3. PROPOFOL. [Concomitant]
     Active Substance: PROPOFOL
     Indication: ANAESTHESIA
     Dosage: UNK
     Route: 042

REACTIONS (3)
  - Priapism [Recovered/Resolved]
  - Off label use [Unknown]
  - Erectile dysfunction [Unknown]
